FAERS Safety Report 4902381-9 (Version None)
Quarter: 2006Q1

REPORT INFORMATION
  Report Type: 
  Country: None (occurrence: None)
  Receive Date: 20060203
  Receipt Date: 20060203
  Transmission Date: 20060701
  Serious: Yes (Death, Life-Threatening, Hospitalization, Other)
  Sender: FDA-Public Use
  Company Number: None

PATIENT
  Age: 79 Year
  Sex: Male

DRUGS (25)
  1. CISPLATIN [Suspect]
     Indication: TONGUE NEOPLASM MALIGNANT STAGE UNSPECIFIED
     Dosage: 100 MG/M**2 CYC IV
     Route: 042
     Dates: start: 20011228, end: 20011228
  2. FLUOROURACIL INJ [Suspect]
     Indication: TONGUE NEOPLASM MALIGNANT STAGE UNSPECIFIED
     Dosage: 1000 MG/M**2 CONT IV
     Route: 042
     Dates: start: 20011228, end: 20011229
  3. TEMAZEPAM [Concomitant]
  4. SERTRALINE [Concomitant]
  5. SENNA [Concomitant]
  6. FENTANYL [Concomitant]
  7. ENOXAPARIN SODIUM [Concomitant]
  8. DIPHENHYDRAMINE [Concomitant]
  9. CALCIUM ACETATE [Concomitant]
  10. OXYCODONE AND ACETAMINOPHEN [Concomitant]
  11. POTASSIUM CHLORIDE [Concomitant]
  12. LOPERAMIDE [Concomitant]
  13. LEVOFLOXACIN [Concomitant]
  14. HALOPERIDOL [Concomitant]
  15. IPRATROPIUM BROMIDE [Concomitant]
  16. ALBUTEROL [Concomitant]
  17. HYDROMORPHONE HCL [Concomitant]
  18. CEFEPIME [Concomitant]
  19. METOCLOPRAMIDE [Concomitant]
  20. LANSOPRAZOLE [Concomitant]
  21. LACTULOSE [Concomitant]
  22. FUROSEMIDE [Concomitant]
  23. CLOPIDOGREL [Concomitant]
  24. NALOXONE [Concomitant]
  25. ALOH/MGOH/SMTH [Concomitant]

REACTIONS (15)
  - ALANINE AMINOTRANSFERASE INCREASED [None]
  - ASPARTATE AMINOTRANSFERASE INCREASED [None]
  - BLOOD LACTATE DEHYDROGENASE INCREASED [None]
  - CHRONIC OBSTRUCTIVE PULMONARY DISEASE [None]
  - CONDITION AGGRAVATED [None]
  - DRUG TOXICITY [None]
  - EMPHYSEMA [None]
  - HAEMODIALYSIS [None]
  - HYPOXIA [None]
  - LUNG INFILTRATION [None]
  - MYOCARDIAL INFARCTION [None]
  - MYOCARDIAL ISCHAEMIA [None]
  - PLEURAL EFFUSION [None]
  - PULMONARY OEDEMA [None]
  - RENAL FAILURE ACUTE [None]
